FAERS Safety Report 4467938-0 (Version None)
Quarter: 2004Q4

REPORT INFORMATION
  Report Type: 
  Country: None (occurrence: None)
  Receive Date: 20041004
  Receipt Date: 20041004
  Transmission Date: 20050328
  Serious: Yes (Other)
  Sender: FDA-Public Use
  Company Number: None

PATIENT
  Age: 67 Year
  Sex: Male
  Weight: 94.3 kg

DRUGS (13)
  1. GATIFLOXACIN [Suspect]
  2. RANITIDINE HCL [Concomitant]
  3. METOPROLOL TARTRATE [Concomitant]
  4. GATIFLOXACIN [Concomitant]
  5. OMEPRAZOLE [Concomitant]
  6. PSYLLIUM SF [Concomitant]
  7. LORAZEPAM [Concomitant]
  8. ALBUTEROL [Concomitant]
  9. NAPROXEN [Concomitant]
  10. HYDROCODONE / ACETAMINOPHEN [Concomitant]
  11. FOSINOPRIL NA [Concomitant]
  12. FLUNISOLIDE [Concomitant]
  13. SIMETHICONE [Concomitant]

REACTIONS (1)
  - CONFUSIONAL STATE [None]
